FAERS Safety Report 9736989 (Version 3)
Quarter: 2015Q3

REPORT INFORMATION
  Report Type: Spontaneous
  Country: US (occurrence: US)
  Receive Date: 20131206
  Receipt Date: 20150804
  Transmission Date: 20151125
  Serious: No
  Sender: FDA-Public Use
  Company Number: US-GILEAD-2009-0023089

PATIENT
  Age: 62 Year
  Sex: Female
  Weight: 113.4 kg

DRUGS (8)
  1. TENORMIN [Concomitant]
     Active Substance: ATENOLOL
  2. RISPERDAL [Concomitant]
     Active Substance: RISPERIDONE
  3. AMLODIPINE BESYLATE. [Concomitant]
     Active Substance: AMLODIPINE BESYLATE
  4. LASIX [Concomitant]
     Active Substance: FUROSEMIDE
  5. LETAIRIS [Suspect]
     Active Substance: AMBRISENTAN
     Indication: PULMONARY ARTERIAL HYPERTENSION
     Route: 048
  6. POTASSIUM CHLORIDE. [Concomitant]
     Active Substance: POTASSIUM CHLORIDE
  7. HYDROCHLOROTHIAZIDE/LOSARTAN POTASSIUM [Concomitant]
  8. PARACETAMOL/HYDROCODONE BITARTRATE [Concomitant]

REACTIONS (3)
  - Malaise [Unknown]
  - Rash macular [Unknown]
  - Peripheral swelling [Unknown]
